FAERS Safety Report 12847134 (Version 1)
Quarter: 2016Q4

REPORT INFORMATION
  Report Type: Spontaneous
  Country: CN (occurrence: CN)
  Receive Date: 20161014
  Receipt Date: 20161014
  Transmission Date: 20170207
  Serious: Yes (Other)
  Sender: FDA-Public Use
  Company Number: CN-BAYER-2016-190158

PATIENT
  Age: 40 Year
  Sex: Female

DRUGS (1)
  1. GLUCOBAY [Suspect]
     Active Substance: ACARBOSE
     Indication: DIABETES MELLITUS
     Dosage: UNK

REACTIONS (4)
  - Diabetes mellitus inadequate control [None]
  - Counterfeit drug administered [None]
  - Gastrointestinal disorder [None]
  - Discomfort [None]

NARRATIVE: CASE EVENT DATE: 2016
